FAERS Safety Report 8191971-9 (Version None)
Quarter: 2012Q1

REPORT INFORMATION
  Report Type: 
  Country: None (occurrence: None)
  Receive Date: 20120307
  Receipt Date: 20120301
  Transmission Date: 20120608
  Serious: Yes (Other)
  Sender: FDA-Public Use
  Company Number: PHHY2012DE014150

PATIENT
  Sex: Male

DRUGS (2)
  1. EXTAVIA [Suspect]
     Indication: MULTIPLE SCLEROSIS
     Dosage: 250 UG, QOD
     Route: 058
  2. OXAZEPAM [Concomitant]
     Indication: DEPENDENCE
     Dosage: 6 DF, UNK

REACTIONS (2)
  - DEPENDENCE [None]
  - AGGRESSION [None]
